FAERS Safety Report 23512547 (Version 2)
Quarter: 2024Q1

REPORT INFORMATION
  Report Type: Spontaneous
  Country: FR (occurrence: FR)
  Receive Date: 20240212
  Receipt Date: 20240216
  Transmission Date: 20240409
  Serious: Yes (Hospitalization)
  Sender: FDA-Public Use
  Company Number: FR-CELLTRION INC.-2024FR002938

PATIENT

DRUGS (3)
  1. HULIO [Suspect]
     Active Substance: ADALIMUMAB-FKJP
     Indication: Palmoplantar pustulosis
     Dosage: 1 DF
     Route: 058
     Dates: start: 202307, end: 202310
  2. ADALIMUMAB [Suspect]
     Active Substance: ADALIMUMAB\ISOPROPYL ALCOHOL
     Indication: Palmoplantar pustulosis
     Dosage: 1 DF
     Route: 065
     Dates: start: 202307
  3. METHOTREXATE [Suspect]
     Active Substance: METHOTREXATE
     Indication: Palmoplantar pustulosis
     Dosage: 1 DF, 1/WEEK
     Route: 065
     Dates: start: 2017, end: 2023

REACTIONS (2)
  - Device loosening [Not Recovered/Not Resolved]
  - Intentional product use issue [Unknown]

NARRATIVE: CASE EVENT DATE: 20231201
